FAERS Safety Report 4977939-1 (Version None)
Quarter: 2006Q2

REPORT INFORMATION
  Report Type: 
  Country: None (occurrence: None)
  Receive Date: 20060420
  Receipt Date: 20060413
  Transmission Date: 20061013
  Serious: Yes (Life-Threatening, Hospitalization, Disabling)
  Sender: FDA-Public Use
  Company Number: US-MERCK-0604USA02134

PATIENT
  Age: 56 Year
  Sex: Female

DRUGS (4)
  1. VIOXX [Suspect]
     Indication: INTERVERTEBRAL DISC PROTRUSION
     Route: 048
     Dates: start: 19990101
  2. LISINOPRIL [Concomitant]
     Route: 065
  3. IBUPROFEN [Concomitant]
     Route: 065
  4. XANAX [Concomitant]
     Route: 065

REACTIONS (3)
  - AMNESIA [None]
  - HYPOACUSIS [None]
  - MENINGITIS BACTERIAL [None]
